FAERS Safety Report 21464860 (Version 1)
Quarter: 2022Q4

REPORT INFORMATION
  Report Type: Report from Study
  Country: PK (occurrence: PK)
  Receive Date: 20221017
  Receipt Date: 20221017
  Transmission Date: 20230113
  Serious: Yes (Other)
  Sender: FDA-Public Use
  Company Number: PK-MYLANLABS-2022M1113328

PATIENT
  Sex: Male

DRUGS (7)
  1. NORVASC [Suspect]
     Active Substance: AMLODIPINE BESYLATE
     Indication: Product used for unknown indication
     Dosage: UNK
     Route: 065
  2. SINEMET [Concomitant]
     Active Substance: CARBIDOPA\LEVODOPA
     Indication: Parkinson^s disease
     Dosage: UNK
     Route: 065
  3. NOCLOT [Concomitant]
     Dosage: 75 MILLIGRAM
     Route: 065
  4. IMUMAX [Concomitant]
     Dosage: UNK
     Route: 065
  5. WHEY [Concomitant]
     Active Substance: WHEY
     Dosage: UNK
     Route: 065
  6. MOSEGOR [Concomitant]
     Dosage: UNK
     Route: 065
  7. SUTENT [Concomitant]
     Active Substance: SUNITINIB MALATE
     Indication: Renal cell carcinoma
     Dosage: 12.5 MILLIGRAM, QD (3 WEEKS (21 DAYS) ON AND 1 WEEK (7 DAYS) OFF, THEN START AGAIN FOR 21 DAYS)
     Route: 048
     Dates: start: 202112

REACTIONS (3)
  - Renal cell carcinoma [Unknown]
  - Pyrexia [Unknown]
  - Intentional dose omission [Unknown]
